FAERS Safety Report 5141563-0 (Version None)
Quarter: 2006Q4

REPORT INFORMATION
  Report Type: 
  Country: None (occurrence: None)
  Receive Date: 20061030
  Receipt Date: 20061030
  Transmission Date: 20070319
  Serious: Yes (Life-Threatening, Hospitalization, Other)
  Sender: FDA-Public Use
  Company Number: None

PATIENT
  Age: 42 Year
  Sex: Male
  Weight: 70.3075 kg

DRUGS (2)
  1. ULTRAM [Suspect]
     Indication: PROCEDURAL PAIN
     Dosage: 50 MGS   4-6 HOURS AS NEEDE   PO
     Route: 048
     Dates: start: 20060904, end: 20061014
  2. ULTRAM [Suspect]
     Indication: SPINAL FUSION SURGERY
     Dosage: 50 MGS   4-6 HOURS AS NEEDE   PO
     Route: 048
     Dates: start: 20060904, end: 20061014

REACTIONS (6)
  - AMNESIA [None]
  - ANGER [None]
  - CONVULSION [None]
  - FALL [None]
  - HEAD INJURY [None]
  - IMPAIRED WORK ABILITY [None]
